FAERS Safety Report 5501023-1 (Version None)
Quarter: 2007Q4

REPORT INFORMATION
  Report Type: 
  Country: None (occurrence: None)
  Receive Date: 20071029
  Receipt Date: 20071015
  Transmission Date: 20080405
  Serious: Yes (Death, Hospitalization)
  Sender: FDA-Public Use
  Company Number: US-SHR-US-2005-008543

PATIENT
  Age: 71 Year
  Sex: Female
  Weight: 68.027 kg

DRUGS (19)
  1. BETASERON [Suspect]
     Indication: RELAPSING-REMITTING MULTIPLE SCLEROSIS
     Dosage: 8 MIU, EVERY 2D
     Route: 058
     Dates: start: 19980317, end: 20050517
  2. BETASERON [Suspect]
     Dosage: 8 MIU, EVERY 2D
     Route: 058
     Dates: start: 20050519, end: 20060201
  3. LEVAQUIN [Concomitant]
     Dosage: 500 MG, 1X/DAY
     Route: 048
  4. SYNTHROID [Concomitant]
     Dosage: .075 A?G, 1X/DAY
     Route: 048
  5. NEURONTIN [Concomitant]
     Dosage: 300 MG, 3X/DAY
     Route: 048
  6. ZOCOR [Concomitant]
     Dosage: 20 MG/D, BED T.
     Route: 048
  7. LISINOPRIL [Concomitant]
     Dosage: 10 MG, 2X/DAY
     Route: 048
  8. ZOLOFT [Concomitant]
     Dosage: 50 MG, 1X/DAY
     Route: 048
  9. DETROL [Concomitant]
     Indication: URINARY INCONTINENCE
     Dosage: 4 MG, 1X/DAY PM
     Route: 048
  10. ALPRAZOLAM [Concomitant]
     Dosage: .25 MG, 2X/DAY PRN
     Route: 048
  11. ESTRACE ^MEAD JOHNSON^ [Concomitant]
     Dosage: 2 MG, 1X/DAY
     Route: 048
  12. MIRALAX [Concomitant]
     Dosage: 17 G, 1X/DAY
     Route: 048
  13. ACETAMINOPHEN [Concomitant]
     Indication: PAIN
     Dosage: 650 MG, AS REQ'D
     Route: 048
  14. FLUOXETINE [Concomitant]
  15. WARFARIN SODIUM [Concomitant]
  16. XANAX [Concomitant]
  17. LOTREL [Concomitant]
  18. PROPOXY [Concomitant]
     Dosage: UNK, AS REQ'D
  19. TUSSIONEX [Concomitant]

REACTIONS (8)
  - BLADDER SPASM [None]
  - CEREBRAL ATROPHY [None]
  - CEREBRAL INFARCTION [None]
  - ESCHERICHIA URINARY TRACT INFECTION [None]
  - HEMIPARESIS [None]
  - LUNG NEOPLASM MALIGNANT [None]
  - MULTIPLE SCLEROSIS [None]
  - SYNCOPE VASOVAGAL [None]
